FAERS Safety Report 17079771 (Version 1)
Quarter: 2019Q4

REPORT INFORMATION
  Report Type: Spontaneous
  Country: US (occurrence: US)
  Receive Date: 20191127
  Receipt Date: 20191127
  Transmission Date: 20200122
  Serious: No
  Sender: FDA-Public Use
  Company Number: US-SHIRE-US201940732

PATIENT
  Age: 68 Year
  Sex: Female

DRUGS (1)
  1. GAMMAGARD LIQUID [Suspect]
     Active Substance: HUMAN IMMUNOGLOBULIN G
     Indication: IMMUNODEFICIENCY COMMON VARIABLE
     Dosage: UNK, EVERY 4 WK
     Route: 065
     Dates: start: 201306

REACTIONS (3)
  - Product availability issue [Unknown]
  - Inappropriate schedule of product administration [Unknown]
  - Influenza [Unknown]
